FAERS Safety Report 6630941-6 (Version None)
Quarter: 2010Q1

REPORT INFORMATION
  Report Type: 
  Country: None (occurrence: None)
  Receive Date: 20100309
  Receipt Date: 20100304
  Transmission Date: 20100710
  Serious: Yes (Hospitalization)
  Sender: FDA-Public Use
  Company Number: ALL1-2010-01185

PATIENT
  Age: 50 Year
  Sex: Female

DRUGS (1)
  1. FOSRENOL [Suspect]
     Indication: HYPERPHOSPHATAEMIA
     Dosage: 1000 MG. TABLET WITH MEALS, ORAL
     Route: 048
     Dates: start: 20090806, end: 20100201

REACTIONS (1)
  - DYSPNOEA [None]
